FAERS Safety Report 14719438 (Version 1)
Quarter: 2018Q2

REPORT INFORMATION
  Report Type: Spontaneous
  Country: DE (occurrence: DE)
  Receive Date: 20180405
  Receipt Date: 20180405
  Transmission Date: 20180711
  Serious: Yes (Other)
  Sender: FDA-Public Use
  Company Number: DE-CIPLA LTD.-2018DE13815

PATIENT

DRUGS (8)
  1. SEROQUEL [Interacting]
     Active Substance: QUETIAPINE FUMARATE
     Indication: PRODUCT USED FOR UNKNOWN INDICATION
     Dosage: 125 DF, (50-25-50)
     Route: 065
     Dates: start: 20170628
  2. LEVOMEPROMAZIN                     /00038601/ [Concomitant]
     Active Substance: LEVOMEPROMAZINE
     Indication: PRODUCT USED FOR UNKNOWN INDICATION
     Dosage: 25 DF, (25-25-25)
     Route: 065
     Dates: start: 20170719, end: 20170720
  3. LEPONEX [Concomitant]
     Active Substance: CLOZAPINE
     Indication: PRODUCT USED FOR UNKNOWN INDICATION
     Dosage: 100-0-75
     Route: 065
     Dates: start: 20170718, end: 20170720
  4. DELIX                              /00885601/ [Concomitant]
     Active Substance: RAMIPRIL
     Indication: PRODUCT USED FOR UNKNOWN INDICATION
     Dosage: 5 DF, (5-0-0)
     Route: 065
     Dates: start: 20170718
  5. PANTOPRAZOL ABZ PROTECT [Concomitant]
     Active Substance: PANTOPRAZOLE SODIUM
     Indication: PRODUCT USED FOR UNKNOWN INDICATION
     Dosage: 20 DF, (20-0-0)
     Route: 065
     Dates: start: 20170624
  6. ESCITALOPRAM [Suspect]
     Active Substance: ESCITALOPRAM OXALATE
     Indication: PRODUCT USED FOR UNKNOWN INDICATION
     Dosage: 5 DF, (5-0-0)
     Route: 065
     Dates: start: 20170720
  7. EISENSULFAT [Concomitant]
     Indication: PRODUCT USED FOR UNKNOWN INDICATION
     Dosage: 1 DF, (1-0-0)
     Route: 065
     Dates: start: 20170706
  8. KALINOR /00031402/ [Concomitant]
     Active Substance: POTASSIUM CHLORIDE
     Indication: PRODUCT USED FOR UNKNOWN INDICATION
     Dosage: UNK (1-0-0)
     Route: 065
     Dates: start: 20170718

REACTIONS (2)
  - Acute abdomen [Recovering/Resolving]
  - Drug interaction [Unknown]

NARRATIVE: CASE EVENT DATE: 20170720
